FAERS Safety Report 22111601 (Version 2)
Quarter: 2023Q2

REPORT INFORMATION
  Report Type: Spontaneous
  Country: MA (occurrence: MA)
  Receive Date: 20230318
  Receipt Date: 20230404
  Transmission Date: 20230721
  Serious: Yes (Life-Threatening, Hospitalization, Other)
  Sender: FDA-Public Use
  Company Number: MA-MACLEODS PHARMACEUTICALS US LTD-MAC2023040284

PATIENT

DRUGS (1)
  1. OLANZAPINE [Suspect]
     Active Substance: OLANZAPINE
     Indication: Schizophrenia
     Dosage: 10 MILLIGRAM, QD (INCREASE THE DAILY DOSAGE OF HIS MEDICATION BY HIMSELF)
     Route: 065

REACTIONS (6)
  - Inappropriate antidiuretic hormone secretion [Recovered/Resolved]
  - Loss of consciousness [Recovered/Resolved]
  - Intentional product use issue [Recovered/Resolved]
  - Hyponatraemia [Recovering/Resolving]
  - Coma [Unknown]
  - Rhabdomyolysis [Recovered/Resolved]
